FAERS Safety Report 6358740-3 (Version None)
Quarter: 2009Q3

REPORT INFORMATION
  Report Type: 
  Country: None (occurrence: None)
  Receive Date: 20090914
  Receipt Date: 20090831
  Transmission Date: 20100115
  Serious: Yes (Death)
  Sender: FDA-Public Use
  Company Number: 2009AL000708

PATIENT
  Age: 70 Year
  Sex: Male

DRUGS (16)
  1. DIGOXIN [Suspect]
     Dosage: 0.25MG, DAILY, PO
     Route: 048
     Dates: start: 20000101
  2. COUMADIN [Concomitant]
  3. HEPARIN [Concomitant]
  4. METOPROLOL [Concomitant]
  5. PNENYTOIN [Concomitant]
  6. ALBUTEROL [Concomitant]
  7. ATROVENT [Concomitant]
  8. OCUFLOX [Concomitant]
  9. ZYRTEC [Concomitant]
  10. TRIMOX [Concomitant]
  11. IBUPROFEN [Concomitant]
  12. VIAGRA [Concomitant]
  13. AMOXICILLIN [Concomitant]
  14. PROAIR HFA [Concomitant]
  15. FUROSEMIDE [Concomitant]
  16. ADVAIR DISKUS 100/50 [Concomitant]

REACTIONS (33)
  - ASTHMA [None]
  - ATRIAL FIBRILLATION [None]
  - CARDIAC ARREST [None]
  - COAGULOPATHY [None]
  - CONVULSION [None]
  - COUGH [None]
  - DEPRESSION [None]
  - DYSPNOEA [None]
  - ECONOMIC PROBLEM [None]
  - EMOTIONAL DISORDER [None]
  - FALL [None]
  - FAMILY STRESS [None]
  - GASTROINTESTINAL HAEMORRHAGE [None]
  - HAEMOTHORAX [None]
  - HEART VALVE STENOSIS [None]
  - HEPATIC CONGESTION [None]
  - HEPATIC FAILURE [None]
  - HYPERTENSION [None]
  - ILL-DEFINED DISORDER [None]
  - MULTI-ORGAN FAILURE [None]
  - MULTIPLE INJURIES [None]
  - MUSCULAR WEAKNESS [None]
  - NASAL CONGESTION [None]
  - ORTHOPNOEA [None]
  - PAIN [None]
  - PNEUMONIA [None]
  - PYREXIA [None]
  - RENAL FAILURE [None]
  - RESPIRATORY FAILURE [None]
  - RIB FRACTURE [None]
  - SEPSIS [None]
  - SOCIAL PROBLEM [None]
  - TRAUMATIC LUNG INJURY [None]
